FAERS Safety Report 8952879 (Version 3)
Quarter: 2016Q3

REPORT INFORMATION
  Report Type: Spontaneous
  Country: US (occurrence: US)
  Receive Date: 20121203
  Receipt Date: 20160915
  Transmission Date: 20161109
  Serious: Yes (Hospitalization, Disabling, Other)
  Sender: FDA-Public Use
  Company Number: US-009507513-1211USA012339

PATIENT
  Sex: Female

DRUGS (2)
  1. FOSAMAX [Suspect]
     Active Substance: ALENDRONATE SODIUM
     Indication: OSTEOPOROSIS
     Dosage: 10 MG, QD
     Route: 048
     Dates: start: 20000624, end: 200101
  2. FOSAMAX [Suspect]
     Active Substance: ALENDRONATE SODIUM
     Indication: OSTEOPENIA
     Dosage: 70 MG, QW
     Route: 048
     Dates: start: 200105, end: 2010

REACTIONS (13)
  - Low turnover osteopathy [Unknown]
  - Femur fracture [Unknown]
  - Musculoskeletal disorder [Unknown]
  - Knee arthroplasty [Unknown]
  - Knee arthroplasty [Unknown]
  - Gastrooesophageal reflux disease [Unknown]
  - Carpal tunnel decompression [Unknown]
  - Hip fracture [Unknown]
  - Multiple fractures [Unknown]
  - Femur fracture [Unknown]
  - Rheumatoid arthritis [Unknown]
  - Osteoporosis [Unknown]
  - Appendicectomy [Unknown]

NARRATIVE: CASE EVENT DATE: 2001
